FAERS Safety Report 7359583-4 (Version None)
Quarter: 2011Q1

REPORT INFORMATION
  Report Type: 
  Country: None (occurrence: None)
  Receive Date: 20110317
  Receipt Date: 20100325
  Transmission Date: 20110831
  Serious: Yes (Other)
  Sender: FDA-Public Use
  Company Number: US-PFIZER INC-2010038711

PATIENT
  Sex: Female
  Weight: 73 kg

DRUGS (3)
  1. INDERAL [Concomitant]
     Indication: HYPERTENSION
     Dosage: 20 MG, 2X/DAY
     Route: 048
  2. AMLODIPINE BESYLATE [Suspect]
     Indication: BLOOD PRESSURE INCREASED
     Dosage: 2.5 MG,
     Route: 048
     Dates: start: 20100301, end: 20100301
  3. LISINOPRIL [Suspect]
     Indication: BLOOD PRESSURE INCREASED
     Dosage: UNK
     Dates: start: 20100101, end: 20100101

REACTIONS (6)
  - DRUG HYPERSENSITIVITY [None]
  - SWOLLEN TONGUE [None]
  - DYSKINESIA [None]
  - PRURITUS [None]
  - URTICARIA [None]
  - FEELING ABNORMAL [None]
